FAERS Safety Report 6154580-9 (Version None)
Quarter: 2009Q2

REPORT INFORMATION
  Report Type: 
  Country: None (occurrence: None)
  Receive Date: 20090414
  Receipt Date: 20090403
  Transmission Date: 20091009
  Serious: Yes (Hospitalization)
  Sender: FDA-Public Use
  Company Number: GB-ELI_LILLY_AND_COMPANY-GB200904001058

PATIENT
  Age: 44 Year
  Sex: Male

DRUGS (1)
  1. OLANZAPINE [Suspect]
     Route: 048

REACTIONS (1)
  - CONGESTIVE CARDIOMYOPATHY [None]
